FAERS Safety Report 5269910-X (Version None)
Quarter: 2007Q1

REPORT INFORMATION
  Report Type: 
  Country: None (occurrence: None)
  Receive Date: 20070320
  Receipt Date: 20070305
  Transmission Date: 20070707
  Serious: Yes (Hospitalization)
  Sender: FDA-Public Use
  Company Number: CA-AMGEN-US213319

PATIENT
  Sex: Female
  Weight: 54.2 kg

DRUGS (9)
  1. KEPIVANCE [Suspect]
     Indication: STOMATITIS
     Route: 042
     Dates: start: 20070224, end: 20070226
  2. AMPHOJEL [Concomitant]
     Route: 065
     Dates: start: 20070223
  3. SYNTHROID [Concomitant]
     Route: 065
  4. ACYCLOVIR [Concomitant]
     Route: 042
     Dates: start: 20070226
  5. ZOFRAN [Concomitant]
     Route: 042
     Dates: start: 20070226
  6. URSODIOL [Concomitant]
     Route: 065
     Dates: start: 20070226
  7. PROTONIX [Concomitant]
     Route: 065
     Dates: start: 20070223
  8. RADIATION THERAPY [Concomitant]
     Route: 050
  9. UNSPECIFIED ANTINEOPLASTIC AGENT [Concomitant]
     Route: 065

REACTIONS (2)
  - BODY TEMPERATURE DECREASED [None]
  - URTICARIA [None]
